FAERS Safety Report 23670313 (Version 6)
Quarter: 2024Q4

REPORT INFORMATION
  Report Type: Report from Study
  Country: ES (occurrence: ES)
  Receive Date: 20240325
  Receipt Date: 20241008
  Transmission Date: 20250115
  Serious: Yes (Hospitalization)
  Sender: ABBVIE
  Company Number: ES-ABBVIE-5691238

PATIENT
  Sex: Male

DRUGS (2)
  1. CARBIDOPA\LEVODOPA [Suspect]
     Active Substance: CARBIDOPA\LEVODOPA
     Indication: Parkinson^s disease
     Route: 050
     Dates: start: 20221028
  2. CARBIDOPA\LEVODOPA [Suspect]
     Active Substance: CARBIDOPA\LEVODOPA

REACTIONS (14)
  - Loss of consciousness [Recovering/Resolving]
  - Parkinson^s disease [Unknown]
  - Therapeutic product effect incomplete [Unknown]
  - Enuresis [Unknown]
  - Oxygen saturation decreased [Unknown]
  - Disorientation [Recovering/Resolving]
  - Off label use [Unknown]
  - Aggression [Not Recovered/Not Resolved]
  - Musculoskeletal stiffness [Unknown]
  - Pain [Unknown]
  - Sleep talking [Unknown]
  - Hallucination [Not Recovered/Not Resolved]
  - Intentional medical device removal by patient [Unknown]
  - Memory impairment [Not Recovered/Not Resolved]

NARRATIVE: CASE EVENT DATE: 20240101
